FAERS Safety Report 9514797 (Version 1)
Quarter: 2013Q1

REPORT INFORMATION
  Report Type: Spontaneous
  Country: US (occurrence: None)
  Receive Date: 20130305
  Receipt Date: 20130305
  Transmission Date: 20140127
  Serious: Yes (Other)
  Sender: FDA-Public Use
  Company Number: 163-21880-12112857

PATIENT
  Age: 77 Year
  Sex: Female
  Weight: 58.97 kg

DRUGS (6)
  1. REVLIMID [Suspect]
     Indication: MYELOFIBROSIS
     Dosage: 5 MG, M-W-F, PO
     Route: 048
     Dates: start: 20120204
  2. ALLOPURINOL (ALLOPRUINOL) (UNKNOWN) [Concomitant]
  3. ASPIRIN (ACETYLSALICYLIC ACID) (ENTERIC-COATED TABLETS) [Concomitant]
  4. HYDROXYZINE HCL (HYDROXYZINE HYDROCHLORIDE) (UNKNOWN)? [Concomitant]
  5. HYOSCYAMINE SULFATE (HYOSCYAMINE SULATE) (UNKNOWN) [Concomitant]
  6. OMEPRAZOLE (OMEPRAZOLE) (UNKNOWN) [Concomitant]

REACTIONS (1)
  - Local swelling [None]
